FAERS Safety Report 18230917 (Version 1)
Quarter: 2020Q3

REPORT INFORMATION
  Report Type: Spontaneous
  Country: NL (occurrence: NL)
  Receive Date: 20200904
  Receipt Date: 20200904
  Transmission Date: 20201103
  Serious: Yes (Death, Life-Threatening, Hospitalization, Other)
  Sender: FDA-Public Use
  Company Number: NL-AUROBINDO-AUR-APL-2020-045731

PATIENT
  Age: 63 Year
  Sex: Male

DRUGS (2)
  1. CARBOPLATIN. [Suspect]
     Active Substance: CARBOPLATIN
     Indication: LUNG ADENOCARCINOMA STAGE III
     Dosage: CHEMORADIATION, 3 CYCLE
     Route: 065
  2. ETOPOSIDE. [Suspect]
     Active Substance: ETOPOSIDE
     Indication: LUNG ADENOCARCINOMA STAGE III
     Dosage: CHEMORADIATION, 3 CYCLE
     Route: 065

REACTIONS (16)
  - Acute respiratory failure [Recovered/Resolved]
  - Bronchopleural fistula [Fatal]
  - Anaemia [Unknown]
  - Pleural effusion [Recovered/Resolved]
  - Pneumonia [Unknown]
  - Atelectasis [Recovered/Resolved]
  - Sepsis [Recovered/Resolved]
  - Weight decreased [Recovered/Resolved]
  - Dysphagia [Recovered/Resolved]
  - Lung consolidation [Recovered/Resolved]
  - Oesophageal stenosis [Recovered/Resolved]
  - Empyema [Recovered/Resolved]
  - Haemoptysis [Unknown]
  - Hypotension [Recovered/Resolved]
  - Mediastinal fibrosis [Recovered/Resolved]
  - Radiation oesophagitis [Recovered/Resolved]

NARRATIVE: CASE EVENT DATE: 2018
